FAERS Safety Report 10868037 (Version 5)
Quarter: 2015Q3

REPORT INFORMATION
  Report Type: Report from Study
  Country: JP (occurrence: JP)
  Receive Date: 20150225
  Receipt Date: 20150928
  Transmission Date: 20151125
  Serious: Yes (Other)
  Sender: FDA-Public Use
  Company Number: PHHY2014JP130120

PATIENT
  Age: 18 Year
  Sex: Female

DRUGS (62)
  1. CLOZARIL [Suspect]
     Active Substance: CLOZAPINE
     Dosage: 250 MG, QD
     Route: 048
     Dates: start: 20130509, end: 20130520
  2. AKINETON [Suspect]
     Active Substance: BIPERIDEN HYDROCHLORIDE
     Indication: PRODUCT USED FOR UNKNOWN INDICATION
     Dosage: 3 MG, QD
     Route: 048
     Dates: start: 20130411, end: 20130501
  3. LONASEN [Suspect]
     Active Substance: BLONANSERIN
     Indication: PRODUCT USED FOR UNKNOWN INDICATION
     Dosage: 24 MG, QD
     Route: 048
     Dates: start: 20130411, end: 20130415
  4. LEVOTOMIN [Suspect]
     Active Substance: LEVOMEPROMAZINE
     Indication: PRODUCT USED FOR UNKNOWN INDICATION
     Dosage: 200 MG, QD
     Route: 048
     Dates: start: 20130411, end: 20130430
  5. CLOZARIL [Suspect]
     Active Substance: CLOZAPINE
     Dosage: 100 MG, QD
     Route: 048
     Dates: start: 20130420, end: 20130421
  6. AKINETON [Suspect]
     Active Substance: BIPERIDEN HYDROCHLORIDE
     Dosage: 2 MG, QD
     Route: 048
     Dates: start: 20131121, end: 20131127
  7. CONSTAN [Concomitant]
     Active Substance: ALPRAZOLAM
     Dosage: 0.8 MG, QD
     Route: 048
     Dates: start: 20131219, end: 20131225
  8. WYPAX [Concomitant]
     Active Substance: LORAZEPAM
     Dosage: 2 MG, QD
     Route: 048
     Dates: start: 20130926, end: 20131002
  9. HORIZON [Concomitant]
     Active Substance: DIAZEPAM
     Indication: SCHIZOPHRENIA, PARANOID TYPE
     Dosage: 6 MG, QD
     Route: 048
     Dates: start: 20140407
  10. CLOZARIL [Suspect]
     Active Substance: CLOZAPINE
     Dosage: 325 MG, QD
     Route: 048
     Dates: start: 20130711, end: 20130717
  11. CLOZARIL [Suspect]
     Active Substance: CLOZAPINE
     Dosage: 350 MG, QD
     Route: 048
     Dates: start: 20130718, end: 20130731
  12. AKINETON [Suspect]
     Active Substance: BIPERIDEN HYDROCHLORIDE
     Dosage: 4 MG, QD
     Route: 048
     Dates: start: 20131024, end: 20131106
  13. NELBON [Concomitant]
     Active Substance: NITRAZEPAM
     Dosage: 10 MG, QD
     Route: 048
     Dates: start: 20130528, end: 20130617
  14. WYPAX [Concomitant]
     Active Substance: LORAZEPAM
     Dosage: 1.5 MG, QD
     Route: 048
     Dates: start: 20131031, end: 20131218
  15. WYPAX [Concomitant]
     Active Substance: LORAZEPAM
     Dosage: 1 MG, QD
     Route: 048
     Dates: start: 20131219, end: 20131225
  16. MEILAX [Concomitant]
     Active Substance: ETHYL LOFLAZEPATE
     Indication: SCHIZOPHRENIA, PARANOID TYPE
     Dosage: 2 MG, QD
     Route: 048
     Dates: start: 20131016, end: 20140115
  17. CLOZARIL [Suspect]
     Active Substance: CLOZAPINE
     Dosage: 250 MG, QD
     Route: 048
     Dates: start: 20130604, end: 20130619
  18. CLOZARIL [Suspect]
     Active Substance: CLOZAPINE
     Dosage: 375 MG, QD
     Route: 048
     Dates: start: 20130801, end: 20130814
  19. AKINETON [Suspect]
     Active Substance: BIPERIDEN HYDROCHLORIDE
     Dosage: 3 MG, QD
     Route: 048
     Dates: start: 20131018, end: 20131023
  20. AKINETON [Suspect]
     Active Substance: BIPERIDEN HYDROCHLORIDE
     Dosage: 6 MG, QD
     Route: 048
     Dates: start: 20131107, end: 20131113
  21. SERENACE [Suspect]
     Active Substance: HALOPERIDOL
     Dosage: 5 MG, QD
     Route: 048
     Dates: start: 20130420, end: 20130426
  22. CEREKINON [Concomitant]
     Active Substance: TRIMEBUTINE
     Indication: CHRONIC GASTRITIS
     Dosage: 200 MG, QD
     Route: 048
     Dates: start: 20130411
  23. CONSTAN [Concomitant]
     Active Substance: ALPRAZOLAM
     Indication: SCHIZOPHRENIA, PARANOID TYPE
     Dosage: 1.2 MG, QD
     Route: 048
     Dates: start: 20131003, end: 20131011
  24. DEPAKENE [Concomitant]
     Active Substance: VALPROIC ACID
     Indication: SCHIZOPHRENIA, PARANOID TYPE
     Dosage: 600 MG, QD
     Route: 048
     Dates: start: 20130726, end: 20131030
  25. LEXOTAN [Concomitant]
     Active Substance: BROMAZEPAM
     Indication: SCHIZOPHRENIA, PARANOID TYPE
     Dosage: 12 MG, QD
     Route: 048
     Dates: start: 20130411, end: 20130507
  26. ROZEREM [Concomitant]
     Active Substance: RAMELTEON
     Indication: SCHIZOPHRENIA, PARANOID TYPE
     Dosage: 8 MG, QD
     Route: 048
     Dates: start: 20140130
  27. CLOZARIL [Suspect]
     Active Substance: CLOZAPINE
     Dosage: 50 MG, QD
     Route: 048
     Dates: start: 20130415, end: 20130417
  28. CLOZARIL [Suspect]
     Active Substance: CLOZAPINE
     Dosage: 75 MG, QD
     Route: 048
     Dates: start: 20130418, end: 20130419
  29. CLOZARIL [Suspect]
     Active Substance: CLOZAPINE
     Dosage: 175 MG, QD
     Route: 048
     Dates: start: 20130428, end: 20130430
  30. CLOZARIL [Suspect]
     Active Substance: CLOZAPINE
     Dosage: 400 MG, QD
     Route: 048
     Dates: start: 20130815, end: 20131127
  31. CLOZARIL [Suspect]
     Active Substance: CLOZAPINE
     Dosage: 325 MG, QD
     Route: 048
     Dates: start: 20131212, end: 20131218
  32. CLOZARIL [Suspect]
     Active Substance: CLOZAPINE
     Dosage: 275 MG, QD
     Route: 048
     Dates: start: 20140104, end: 20140108
  33. NELBON [Concomitant]
     Active Substance: NITRAZEPAM
     Indication: SCHIZOPHRENIA, PARANOID TYPE
     Dosage: 15 MG, QD
     Route: 048
     Dates: start: 20130411, end: 20130527
  34. NELBON [Concomitant]
     Active Substance: NITRAZEPAM
     Dosage: 5 MG, QD
     Route: 048
     Dates: start: 20130618, end: 20130708
  35. CONSTAN [Concomitant]
     Active Substance: ALPRAZOLAM
     Dosage: 1.2 MG, QD
     Route: 048
     Dates: start: 20131112, end: 20131218
  36. CLOZARIL [Suspect]
     Active Substance: CLOZAPINE
     Indication: SCHIZOPHRENIA, PARANOID TYPE
     Dosage: 12.5 MG, QD
     Route: 048
     Dates: start: 20130411, end: 20130411
  37. CLOZARIL [Suspect]
     Active Substance: CLOZAPINE
     Dosage: 200 MG, QD
     Route: 048
     Dates: start: 20130501, end: 20130508
  38. CLOZARIL [Suspect]
     Active Substance: CLOZAPINE
     Dosage: 300 MG, QD
     Route: 048
     Dates: start: 20130521, end: 20130603
  39. CLOZARIL [Suspect]
     Active Substance: CLOZAPINE
     Dosage: 375 MG, QD
     Route: 048
     Dates: start: 20131128, end: 20131204
  40. CLOZARIL [Suspect]
     Active Substance: CLOZAPINE
     Dosage: 350 MG, QD
     Route: 048
     Dates: start: 20131205, end: 20131211
  41. AKINETON [Suspect]
     Active Substance: BIPERIDEN HYDROCHLORIDE
     Dosage: 2 MG, QD
     Route: 048
     Dates: start: 20130823, end: 20131017
  42. SERENACE [Suspect]
     Active Substance: HALOPERIDOL
     Indication: PRODUCT USED FOR UNKNOWN INDICATION
     Dosage: 11 MG, QD
     Route: 048
     Dates: start: 20130411, end: 20130419
  43. MEILAX [Concomitant]
     Active Substance: ETHYL LOFLAZEPATE
     Dosage: 1 MG, QD
     Route: 048
     Dates: start: 20140116, end: 20140319
  44. CLOZARIL [Suspect]
     Active Substance: CLOZAPINE
     Dosage: 25 MG, QD
     Route: 048
     Dates: start: 20130412, end: 20130414
  45. CLOZARIL [Suspect]
     Active Substance: CLOZAPINE
     Dosage: 125 MG, QD
     Route: 048
     Dates: start: 20130422, end: 20130424
  46. CLOZARIL [Suspect]
     Active Substance: CLOZAPINE
     Dosage: 250 MG, QD
     Route: 048
     Dates: start: 20140109, end: 20140115
  47. CLOZARIL [Suspect]
     Active Substance: CLOZAPINE
     Dosage: 200 MG, QD
     Route: 048
     Dates: start: 20140123
  48. AKINETON [Suspect]
     Active Substance: BIPERIDEN HYDROCHLORIDE
     Dosage: 6 MG, QD
     Route: 048
     Dates: start: 20130502, end: 20130722
  49. SELENICA-R [Concomitant]
     Active Substance: SELENIUM
     Dosage: 600 MG, QD
     Route: 048
     Dates: start: 20131031, end: 20131120
  50. LEXOTAN [Concomitant]
     Active Substance: BROMAZEPAM
     Dosage: 6 MG, QD
     Route: 048
     Dates: start: 20130508, end: 20130509
  51. BENZALIN [Concomitant]
     Active Substance: NITRAZEPAM
     Indication: SCHIZOPHRENIA, PARANOID TYPE
     Dosage: 5 MG, QD
     Route: 048
     Dates: start: 20140220, end: 20140226
  52. CLOZARIL [Suspect]
     Active Substance: CLOZAPINE
     Dosage: 150 MG, QD
     Route: 048
     Dates: start: 20130425, end: 20130427
  53. CLOZARIL [Suspect]
     Active Substance: CLOZAPINE
     Dosage: 275 MG, QD
     Route: 048
     Dates: start: 20130620, end: 20130703
  54. CLOZARIL [Suspect]
     Active Substance: CLOZAPINE
     Dosage: 300 MG, QD
     Route: 048
     Dates: start: 20130704, end: 20130710
  55. CLOZARIL [Suspect]
     Active Substance: CLOZAPINE
     Dosage: 300 MG, QD
     Route: 048
     Dates: start: 20131219, end: 20140103
  56. CLOZARIL [Suspect]
     Active Substance: CLOZAPINE
     Dosage: 225 MG, QD
     Route: 048
     Dates: start: 20140116, end: 20140122
  57. AKINETON [Suspect]
     Active Substance: BIPERIDEN HYDROCHLORIDE
     Dosage: 4 MG, QD
     Route: 048
     Dates: start: 20130723, end: 20130725
  58. AKINETON [Suspect]
     Active Substance: BIPERIDEN HYDROCHLORIDE
     Dosage: 3 MG, QD
     Route: 048
     Dates: start: 20130726, end: 20130822
  59. AKINETON [Suspect]
     Active Substance: BIPERIDEN HYDROCHLORIDE
     Dosage: 4 MG, QD
     Route: 048
     Dates: start: 20131114, end: 20131120
  60. SELENICA-R [Concomitant]
     Active Substance: SELENIUM
     Indication: SCHIZOPHRENIA, PARANOID TYPE
     Dosage: 600 MG, QD
     Route: 048
     Dates: start: 20130411, end: 20130725
  61. WYPAX [Concomitant]
     Active Substance: LORAZEPAM
     Indication: SCHIZOPHRENIA, PARANOID TYPE
     Dosage: 1 MG, QD
     Route: 048
     Dates: start: 20130730, end: 20130925
  62. LUNESTA [Concomitant]
     Active Substance: ESZOPICLONE
     Indication: SCHIZOPHRENIA, PARANOID TYPE
     Dosage: 1 MG, QD
     Route: 048
     Dates: start: 20140213, end: 20140219

REACTIONS (15)
  - Pleural effusion [Recovering/Resolving]
  - Salivary hypersecretion [Recovering/Resolving]
  - Neutrophil percentage increased [Not Recovered/Not Resolved]
  - Salivary hypersecretion [Recovered/Resolved]
  - Pyrexia [Recovering/Resolving]
  - C-reactive protein increased [Not Recovered/Not Resolved]
  - Blood pressure decreased [Not Recovered/Not Resolved]
  - Pneumonia aspiration [Recovered/Resolved]
  - Bronchitis chronic [Recovered/Resolved]
  - Amenorrhoea [Not Recovered/Not Resolved]
  - Weight increased [Not Recovered/Not Resolved]
  - Tachycardia [Not Recovered/Not Resolved]
  - Dizziness postural [Not Recovered/Not Resolved]
  - Constipation [Recovering/Resolving]
  - White blood cell count increased [Unknown]

NARRATIVE: CASE EVENT DATE: 20130411
